FAERS Safety Report 24201778 (Version 1)
Quarter: 2024Q3

REPORT INFORMATION
  Report Type: Report from Study
  Country: US (occurrence: US)
  Receive Date: 20240812
  Receipt Date: 20240812
  Transmission Date: 20241016
  Serious: Yes (Other)
  Sender: JAZZ
  Company Number: US-JAZZ PHARMACEUTICALS-2024-US-012058

PATIENT

DRUGS (1)
  1. EPIDIOLEX [Suspect]
     Active Substance: CANNABIDIOL
     Indication: Product used for unknown indication
     Dosage: UNK

REACTIONS (6)
  - Suicidal ideation [Unknown]
  - Intentional self-injury [Unknown]
  - Depression [Unknown]
  - Dizziness [Unknown]
  - Balance disorder [Unknown]
  - Anxiety [Unknown]
